FAERS Safety Report 5651923-7 (Version None)
Quarter: 2008Q1

REPORT INFORMATION
  Report Type: 
  Country: None (occurrence: None)
  Receive Date: 20080304
  Receipt Date: 20080220
  Transmission Date: 20080703
  Serious: Yes (Other)
  Sender: FDA-Public Use
  Company Number: TRP_01074_2008

PATIENT
  Age: 59 Year
  Sex: Male

DRUGS (2)
  1. RIBASPHERE [Suspect]
     Indication: HEPATITIS C VIRUS
     Dosage: 1200 MG , FREQUENCY ORAL
     Route: 048
     Dates: start: 20070323
  2. PEGASYS [Suspect]
     Indication: HEPATITIS C VIRUS
     Dosage: 180 UG UNKNOWN FREQUENCY SUBCUTANEOUS
     Route: 058
     Dates: start: 20070323

REACTIONS (7)
  - DEAFNESS UNILATERAL [None]
  - EAR INFECTION [None]
  - FATIGUE [None]
  - IRRITABILITY [None]
  - MEMORY IMPAIRMENT [None]
  - NERVOUS SYSTEM DISORDER [None]
  - TYMPANIC MEMBRANE PERFORATION [None]
